FAERS Safety Report 16744756 (Version 1)
Quarter: 2019Q3

REPORT INFORMATION
  Report Type: Spontaneous
  Country: JP (occurrence: JP)
  Receive Date: 20190827
  Receipt Date: 20190827
  Transmission Date: 20191005
  Serious: Yes (Congenital Anomaly, Other)
  Sender: FDA-Public Use
  Company Number: JP-OXFORD PHARMACEUTICALS, LLC-2019OXF00120

PATIENT

DRUGS (3)
  1. SOTALOL. [Suspect]
     Active Substance: SOTALOL
     Indication: FOETAL ARRHYTHMIA
     Dosage: 160 MG, 1X/DAY (IN 3 DIVIDED DOSES)
     Route: 064
  2. DIGOXIN. [Concomitant]
     Active Substance: DIGOXIN
     Route: 064
  3. DIGOXIN. [Concomitant]
     Active Substance: DIGOXIN
     Dosage: 0.75 MG, 1X/DAY
     Route: 064

REACTIONS (4)
  - Foetal exposure during pregnancy [Recovered/Resolved]
  - Foetal tachyarrhythmia [Not Recovered/Not Resolved]
  - Hydrops foetalis [Not Recovered/Not Resolved]
  - Cardiac failure [Not Recovered/Not Resolved]
